FAERS Safety Report 4497814-9 (Version None)
Quarter: 2004Q4

REPORT INFORMATION
  Report Type: 
  Country: None (occurrence: None)
  Receive Date: 20041110
  Receipt Date: 20041029
  Transmission Date: 20050328
  Serious: Yes (Other)
  Sender: FDA-Public Use
  Company Number: US-BRISTOL-MYERS SQUIBB COMPANY-12749180

PATIENT
  Age: 51 Year
  Sex: Male

DRUGS (6)
  1. BLINDED: ARIPIPRAZOLE [Suspect]
     Indication: BIPOLAR I DISORDER
     Route: 048
     Dates: start: 20041020, end: 20041027
  2. BLINDED: LITHIUM [Suspect]
     Indication: BIPOLAR I DISORDER
     Route: 048
     Dates: start: 20041020, end: 20041027
  3. BLINDED: PLACEBO [Suspect]
     Indication: BIPOLAR I DISORDER
     Dosage: 300 OR 15 MG
     Route: 048
     Dates: start: 20041020, end: 20041027
  4. LIPITOR [Concomitant]
  5. CLONIDINE HCL [Concomitant]
  6. LOTENSIN [Concomitant]

REACTIONS (1)
  - THERAPEUTIC AGENT TOXICITY [None]
